FAERS Safety Report 11789636 (Version 1)
Quarter: 2015Q4

REPORT INFORMATION
  Report Type: Spontaneous
  Country: US (occurrence: None)
  Receive Date: 20151130
  Receipt Date: 20151130
  Transmission Date: 20160305
  Serious: Yes (Other)
  Sender: FDA-Public Use
  Company Number: None

PATIENT
  Age: 55 Year
  Sex: Female

DRUGS (1)
  1. PROPOFOL. [Suspect]
     Active Substance: PROPOFOL
     Indication: INDUCTION OF ANAESTHESIA
     Dosage: INFUSION
     Route: 042
     Dates: start: 20151117

REACTIONS (3)
  - Drug effect decreased [None]
  - Blood pressure abnormal [None]
  - Therapeutic response decreased [None]

NARRATIVE: CASE EVENT DATE: 20151117
